FAERS Safety Report 9471137 (Version 4)
Quarter: 2014Q2

REPORT INFORMATION
  Report Type: Report from Study
  Country: GB (occurrence: GB)
  Receive Date: 20130822
  Receipt Date: 20140407
  Transmission Date: 20141212
  Serious: Yes (Death, Hospitalization)
  Sender: FDA-Public Use
  Company Number: GB-PFIZER INC-2013237744

PATIENT
  Age: 86 Year
  Sex: Female

DRUGS (10)
  1. TIGECYCLINE [Suspect]
     Indication: INFECTION
     Dosage: 100 MG, SINGLE
     Route: 042
     Dates: start: 20121112, end: 20121112
  2. TIGECYCLINE [Suspect]
     Dosage: 50 MG, 2X/DAY
     Route: 042
     Dates: start: 20121113, end: 20121124
  3. CIPROFLOXACIN [Concomitant]
     Indication: ENDOCARDITIS
     Dosage: UNK
     Route: 048
     Dates: start: 20121112, end: 20121120
  4. PARACETAMOL [Concomitant]
     Indication: ANALGESIC THERAPY
     Dosage: UNK
     Route: 048
     Dates: start: 20121114
  5. FLUCONAZOLE [Concomitant]
     Indication: BILIARY SEPSIS
     Dosage: UNK
     Route: 048
     Dates: start: 20121113
  6. TRAMADOL [Concomitant]
     Indication: ANALGESIC THERAPY
     Dosage: UNK
     Route: 048
     Dates: start: 20121113
  7. CETIRIZINE [Concomitant]
     Indication: PROPHYLAXIS
     Dosage: UNK
     Route: 048
     Dates: start: 20121119, end: 20121126
  8. OMEPRAZOLE [Concomitant]
     Indication: GASTRIC DISORDER
     Dosage: UNK
     Route: 048
     Dates: start: 20121115
  9. TINZAPARIN SODIUM [Concomitant]
     Indication: THROMBOSIS PROPHYLAXIS
     Dosage: UNK
     Route: 058
     Dates: start: 20121114
  10. PIPERACILLIN/TAZOBACTAM [Concomitant]
     Indication: BILIARY SEPSIS
     Dosage: UNK
     Route: 042
     Dates: start: 20121116, end: 20121119

REACTIONS (1)
  - Pseudomonas infection [Fatal]
